FAERS Safety Report 9514990 (Version 1)
Quarter: 2013Q1

REPORT INFORMATION
  Report Type: Spontaneous
  Country: US (occurrence: None)
  Receive Date: 20130305
  Receipt Date: 20130305
  Transmission Date: 20140127
  Serious: Yes (Hospitalization)
  Sender: FDA-Public Use
  Company Number: 163-21880-12122960

PATIENT
  Age: 70 Year
  Sex: Male
  Weight: 72.58 kg

DRUGS (6)
  1. REVLIMID (LENALIDOMIDE) [Suspect]
     Indication: PLASMA CELL MYELOMA
     Dates: start: 20121201
  2. ACYCLOVIR [Concomitant]
  3. DEXAMETHAXONE [Concomitant]
  4. LOVASTATIN [Concomitant]
  5. OMEPRAZOLE [Concomitant]
  6. VELCADE (BORTEZOMIB) [Concomitant]

REACTIONS (1)
  - Full blood count decreased [None]
